FAERS Safety Report 5326521-5 (Version None)
Quarter: 2007Q2

REPORT INFORMATION
  Report Type: 
  Country: None (occurrence: None)
  Receive Date: 20070510
  Receipt Date: 20070426
  Transmission Date: 20071010
  Serious: Yes (Hospitalization)
  Sender: FDA-Public Use
  Company Number: 2006US002774

PATIENT
  Age: 57 Year
  Sex: Male

DRUGS (7)
  1. PROGRAF [Suspect]
     Indication: RENAL TRANSPLANT
     Dosage: 7 MG, ORAL
     Route: 048
     Dates: start: 20051109
  2. MYCOPHENOLATE MOFETIL [Suspect]
     Indication: RENAL TRANSPLANT
     Dosage: 1500 MG, BID, IV NOS
     Route: 042
     Dates: start: 20061109, end: 20061226
  3. PEPCID [Concomitant]
  4. NORVASC [Concomitant]
  5. HYDRALAZINE HCL [Concomitant]
  6. LIPITOR [Concomitant]
  7. VIAGRA [Concomitant]

REACTIONS (2)
  - BLOOD CREATININE INCREASED [None]
  - POLYOMAVIRUS-ASSOCIATED NEPHROPATHY [None]
